FAERS Safety Report 23015747 (Version 3)
Quarter: 2023Q4

REPORT INFORMATION
  Report Type: Report from Study
  Country: BR (occurrence: BR)
  Receive Date: 20231002
  Receipt Date: 20231010
  Transmission Date: 20240110
  Serious: Yes (Other)
  Sender: FDA-Public Use
  Company Number: BR-MYLANLABS-2023M1103074

PATIENT
  Sex: Male

DRUGS (6)
  1. XALATAN [Suspect]
     Active Substance: LATANOPROST
     Indication: Intraocular pressure increased
     Dosage: 1 GTT DROPS, QD (1 DROP IN EACH EYE AT NIGHT)
     Route: 047
     Dates: start: 2003
  2. XALATAN [Suspect]
     Active Substance: LATANOPROST
     Indication: Glaucoma
  3. LATANOPROST\TIMOLOL MALEATE [Suspect]
     Active Substance: LATANOPROST\TIMOLOL MALEATE
     Indication: Intraocular pressure increased
     Dosage: UNK
     Route: 065
  4. COSOPT [Concomitant]
     Active Substance: DORZOLAMIDE HYDROCHLORIDE\TIMOLOL MALEATE
     Dosage: UNK
     Route: 065
  5. ASPIRIN [Concomitant]
     Active Substance: ASPIRIN
     Indication: Prophylaxis
     Dosage: 100 MILLIGRAM, UNK
     Route: 048
     Dates: start: 2003
  6. LUMIGAN [Concomitant]
     Active Substance: BIMATOPROST
     Indication: Intraocular pressure test
     Dosage: UNK
     Route: 065

REACTIONS (5)
  - Glaucoma [Not Recovered/Not Resolved]
  - Cataract [Unknown]
  - Drug ineffective [Not Recovered/Not Resolved]
  - Visual impairment [Not Recovered/Not Resolved]
  - Ocular discomfort [Not Recovered/Not Resolved]
